FAERS Safety Report 4701137-X (Version None)
Quarter: 2005Q2

REPORT INFORMATION
  Report Type: 
  Country: None (occurrence: None)
  Receive Date: 20050628
  Receipt Date: 20050624
  Transmission Date: 20051028
  Serious: Yes (Death, Hospitalization)
  Sender: FDA-Public Use
  Company Number: 164

PATIENT
  Age: 69 Year
  Sex: Male
  Weight: 68 kg

DRUGS (10)
  1. MELPHALAN [Suspect]
     Indication: MULTIPLE MYELOMA
     Route: 042
     Dates: start: 20050602
  2. TEQUIN [Concomitant]
     Route: 048
  3. HALOPERIDOL [Concomitant]
     Indication: ANXIETY
     Dosage: .5MG TWICE PER DAY
  4. POTASSIUM CHLORIDE [Concomitant]
     Indication: HYPOKALAEMIA
  5. DIGITEK [Concomitant]
     Indication: ATRIAL FIBRILLATION
  6. FLUDROCORTISONE [Concomitant]
  7. FOLIC ACID [Concomitant]
     Indication: NUTRITIONAL SUPPORT
  8. FLOMAX [Concomitant]
     Indication: BENIGN PROSTATIC HYPERPLASIA
  9. ACYCLOVIR [Concomitant]
     Dosage: 400MG TWICE PER DAY
  10. ATIVAN [Concomitant]
     Indication: ANXIETY

REACTIONS (12)
  - ASTHENIA [None]
  - CONFUSIONAL STATE [None]
  - COUGH [None]
  - DEATH [None]
  - FEBRILE NEUTROPENIA [None]
  - LETHARGY [None]
  - LOCAL SWELLING [None]
  - PAROTITIS [None]
  - PYREXIA [None]
  - RESPIRATORY RATE INCREASED [None]
  - RESTLESSNESS [None]
  - TACHYCARDIA [None]
